FAERS Safety Report 4370073-3 (Version None)
Quarter: 2004Q2

REPORT INFORMATION
  Report Type: 
  Country: None (occurrence: None)
  Receive Date: 20040525
  Receipt Date: 20040513
  Transmission Date: 20050107
  Serious: Yes (Hospitalization)
  Sender: FDA-Public Use
  Company Number: 2004032720

PATIENT
  Sex: Male

DRUGS (15)
  1. SORTIS (ATORVASTATIN) [Suspect]
     Indication: HYPERLIPIDAEMIA
     Dosage: 20 MG (1 IN D), ORAL
     Route: 048
  2. METFORMIN HCL [Suspect]
     Indication: ILL-DEFINED DISORDER
     Dosage: 425 MG (1 IN 1 D), ORAL
     Route: 048
  3. PREDNISOLONE [Concomitant]
  4. METOPROLOL SUCCINATE (METROPROLOL  SUCCINATE) [Concomitant]
  5. CARVEDILOL [Concomitant]
  6. ACETYLSALICYLIC ACID SRT [Concomitant]
  7. CLOPIDOGREL BISULFATE [Concomitant]
  8. RAMIPRIL [Concomitant]
  9. TORSEMIDE [Concomitant]
  10. GLYBURIDE [Concomitant]
  11. DIGITOXIN TAB [Concomitant]
  12. TROMCARDIN (ASPARTATE POTASSIUM, MAGNESIUM ASPARTATE) [Concomitant]
  13. ACARBOSE (ACARBOSE) [Concomitant]
  14. MAGNESIUM OROTATE (MAGNESIUM OROTATE) [Concomitant]
  15. FINASTERIDE [Concomitant]

REACTIONS (2)
  - DRUG INTERACTION [None]
  - RHABDOMYOLYSIS [None]
